FAERS Safety Report 4946403-8 (Version None)
Quarter: 2006Q1

REPORT INFORMATION
  Report Type: 
  Country: None (occurrence: None)
  Receive Date: 20060316
  Receipt Date: 20060316
  Transmission Date: 20060701
  Serious: Yes (Other)
  Sender: FDA-Public Use
  Company Number: None

PATIENT
  Sex: Female
  Weight: 60.3284 kg

DRUGS (4)
  1. HUMAN ALBUMIN  5%     BAXTER HEALTHCARE [Suspect]
     Indication: FLUID REPLACEMENT
     Dosage: 1488 ML  ONCE  IV
     Route: 042
  2. HUMAN ALBUMIN  5%     BAXTER HEALTHCARE [Suspect]
     Indication: PLASMAPHERESIS
     Dosage: 1488 ML  ONCE  IV
     Route: 042
  3. CITRATE [Concomitant]
  4. SALINE [Concomitant]

REACTIONS (6)
  - DYSPNOEA [None]
  - HEART RATE INCREASED [None]
  - OXYGEN SATURATION DECREASED [None]
  - SWELLING FACE [None]
  - URTICARIA [None]
  - WHEEZING [None]
